FAERS Safety Report 15715569 (Version 1)
Quarter: 2018Q4

REPORT INFORMATION
  Report Type: Spontaneous
  Country: US (occurrence: US)
  Receive Date: 20181212
  Receipt Date: 20181212
  Transmission Date: 20190205
  Serious: Yes (Other)
  Sender: FDA-Public Use
  Company Number: US-CELGENEUS-USA-20181201451

PATIENT

DRUGS (3)
  1. PRACINOSTAT [Suspect]
     Active Substance: PRACINOSTAT
     Indication: MYELODYSPLASTIC SYNDROME
     Dosage: 60 MILLIGRAM
     Route: 065
  2. AZACITIDINE. [Suspect]
     Active Substance: AZACITIDINE
     Indication: MYELODYSPLASTIC SYNDROME
     Dosage: 75 MILLIGRAM/SQ. METER
     Route: 050
  3. PRACINOSTAT [Suspect]
     Active Substance: PRACINOSTAT
     Route: 065

REACTIONS (1)
  - Febrile neutropenia [Unknown]
